FAERS Safety Report 21390856 (Version 6)
Quarter: 2023Q1

REPORT INFORMATION
  Report Type: Spontaneous
  Country: US (occurrence: US)
  Receive Date: 20220929
  Receipt Date: 20230203
  Transmission Date: 20230418
  Serious: Yes (Other)
  Sender: FDA-Public Use
  Company Number: US-PFIZER INC-PV202200072506

PATIENT
  Age: 64 Year
  Sex: Male

DRUGS (3)
  1. INLYTA [Suspect]
     Active Substance: AXITINIB
     Dosage: 1 DF, 2X/DAY
     Dates: start: 202209, end: 202210
  2. INLYTA [Suspect]
     Active Substance: AXITINIB
     Dosage: TAKING 1 PILL PER DAY
     Dates: start: 202210
  3. INLYTA [Suspect]
     Active Substance: AXITINIB
     Dosage: 5 MG, 1X/DAY (BY MOUTH ONCE DAILY)
     Route: 048

REACTIONS (16)
  - Renal impairment [Not Recovered/Not Resolved]
  - Blood pressure increased [Not Recovered/Not Resolved]
  - Dysphonia [Recovered/Resolved]
  - Fatigue [Not Recovered/Not Resolved]
  - Headache [Recovered/Resolved]
  - Nausea [Recovered/Resolved]
  - Blister [Unknown]
  - Asthenia [Unknown]
  - Diarrhoea [Not Recovered/Not Resolved]
  - Abdominal pain upper [Not Recovered/Not Resolved]
  - Faeces soft [Unknown]
  - Pain [Unknown]
  - Gastrointestinal pain [Unknown]
  - Dry mouth [Unknown]
  - Oral mucosal blistering [Unknown]
  - Rash [Not Recovered/Not Resolved]
